FAERS Safety Report 24958504 (Version 1)
Quarter: 2025Q1

REPORT INFORMATION
  Report Type: Spontaneous
  Country: US (occurrence: US)
  Receive Date: 20250212
  Receipt Date: 20250212
  Transmission Date: 20250409
  Serious: Yes (Other)
  Sender: DR REDDYS
  Company Number: US-drreddys-USA/USA/21/0136452

PATIENT
  Age: 27 Year
  Sex: Female

DRUGS (2)
  1. ZENATANE [Suspect]
     Active Substance: ISOTRETINOIN
     Indication: Product used for unknown indication
     Dosage: QD, STARTED DRUG ON 15-APR-2021 12:30:50 PM
     Route: 065
     Dates: end: 20210425
  2. ZENATANE [Suspect]
     Active Substance: ISOTRETINOIN

REACTIONS (4)
  - Hallucination [Recovered/Resolved]
  - Exposure during pregnancy [Unknown]
  - Normal newborn [Unknown]
  - Treatment noncompliance [Unknown]

NARRATIVE: CASE EVENT DATE: 20210401
